FAERS Safety Report 25328942 (Version 3)
Quarter: 2025Q3

REPORT INFORMATION
  Report Type: Report from Study
  Country: US (occurrence: US)
  Receive Date: 20250519
  Receipt Date: 20250801
  Transmission Date: 20251020
  Serious: Yes (Death, Other)
  Sender: ACADIA PHARMACEUTICALS
  Company Number: US-ACADIA PHARMACEUTICALS INC.-ACA-2025-PIM-005814

PATIENT
  Age: 78 Year
  Sex: Male

DRUGS (16)
  1. NUPLAZID [Suspect]
     Active Substance: PIMAVANSERIN TARTRATE
     Indication: Parkinson^s disease
     Dosage: 34 MILLIGRAM, QD
     Route: 048
     Dates: end: 20250425
  2. NUPLAZID [Suspect]
     Active Substance: PIMAVANSERIN TARTRATE
     Indication: Parkinson^s disease psychosis
  3. QUETIAPINE FUMARATE [Concomitant]
     Active Substance: QUETIAPINE FUMARATE
  4. VITAMIN B12 [Concomitant]
     Active Substance: CYANOCOBALAMIN
  5. CITALOPRAM HYDROBROMIDE [Concomitant]
     Active Substance: CITALOPRAM HYDROBROMIDE
  6. LATANOPROST [Concomitant]
     Active Substance: LATANOPROST
  7. VITAMIN C [Concomitant]
     Active Substance: ASCORBIC ACID
  8. CLONAZEPAM [Concomitant]
     Active Substance: CLONAZEPAM
  9. MESALAMINE [Concomitant]
     Active Substance: MESALAMINE
  10. VITAMIN D2 [Concomitant]
     Active Substance: ERGOCALCIFEROL
  11. MELOXICAM [Concomitant]
     Active Substance: MELOXICAM
  12. CLARITIN [Concomitant]
     Active Substance: LORATADINE
  13. BRIMONIDINE TARTRATE;TIMOLOL [Concomitant]
  14. CREXONT [Concomitant]
     Active Substance: CARBIDOPA\LEVODOPA
  15. ALBUTEROL SULFATE [Concomitant]
     Active Substance: ALBUTEROL SULFATE
  16. ROCKLATAN [Concomitant]
     Active Substance: LATANOPROST\NETARSUDIL MESYLATE

REACTIONS (1)
  - Death [Fatal]

NARRATIVE: CASE EVENT DATE: 20250425
